FAERS Safety Report 7887386-0 (Version None)
Quarter: 2011Q4

REPORT INFORMATION
  Report Type: 
  Country: None (occurrence: None)
  Receive Date: 20111102
  Receipt Date: 20110719
  Transmission Date: 20120403
  Serious: No
  Sender: FDA-Public Use
  Company Number: US-AMGEN-USASP2011036580

PATIENT
  Age: 39 Year
  Sex: Male

DRUGS (1)
  1. ENBREL [Suspect]
     Indication: PSORIASIS
     Dates: start: 20030101

REACTIONS (5)
  - DRUG INEFFECTIVE [None]
  - FATIGUE [None]
  - TYPE 2 DIABETES MELLITUS [None]
  - PAIN [None]
  - ERYTHEMA [None]
